FAERS Safety Report 6132500-0 (Version None)
Quarter: 2009Q1

REPORT INFORMATION
  Report Type: 
  Country: None (occurrence: None)
  Receive Date: 20090324
  Receipt Date: 20090312
  Transmission Date: 20090719
  Serious: Yes (Other)
  Sender: FDA-Public Use
  Company Number: 2009AP001190

PATIENT
  Age: 63 Year
  Sex: Female

DRUGS (1)
  1. RANITIDINE HYDROCHLORIDE [Suspect]
     Indication: DYSPEPSIA
     Dosage: 300 MG; QD; PO
     Route: 048

REACTIONS (5)
  - DRUG INEFFECTIVE [None]
  - DYSPEPSIA [None]
  - HELICOBACTER INFECTION [None]
  - MELAENA [None]
  - PRODUCT QUALITY ISSUE [None]
